FAERS Safety Report 17477998 (Version 6)
Quarter: 2021Q2

REPORT INFORMATION
  Report Type: Spontaneous
  Country: US (occurrence: US)
  Receive Date: 20200228
  Receipt Date: 20210514
  Transmission Date: 20210716
  Serious: No
  Sender: FDA-Public Use
  Company Number: US-SA-2020SA051581

PATIENT
  Age: 71 Year
  Sex: Male

DRUGS (3)
  1. ZINC. [Concomitant]
     Active Substance: ZINC
     Dosage: UNK
     Route: 065
  2. VITAMIN E [Concomitant]
     Active Substance: .ALPHA.-TOCOPHEROL
     Dosage: UNK
     Route: 065
  3. CAPRELSA [Suspect]
     Active Substance: VANDETANIB
     Indication: THYROID CANCER
     Dosage: 300 MG, QD
     Route: 048
     Dates: start: 20200129

REACTIONS (8)
  - Thyroid hormones increased [Unknown]
  - Diarrhoea [Recovered/Resolved]
  - Heart rate decreased [Unknown]
  - Pancreatic enzymes decreased [Unknown]
  - Prostatic specific antigen increased [Unknown]
  - Acne [Unknown]
  - Hypertension [Unknown]
  - Epistaxis [Unknown]
